FAERS Safety Report 4346540-5 (Version None)
Quarter: 2004Q2

REPORT INFORMATION
  Report Type: 
  Country: None (occurrence: None)
  Receive Date: 20040426
  Receipt Date: 20031212
  Transmission Date: 20050107
  Serious: No
  Sender: FDA-Public Use
  Company Number: US-BRISTOL-MYERS SQUIBB COMPANY-12458048

PATIENT
  Sex: Female

DRUGS (1)
  1. CARBOPLATIN [Suspect]
     Dosage: ALSO RECEIVED A DOSE THE WEEK BEFORE
     Dates: start: 20031212, end: 20031212

REACTIONS (1)
  - MEDICATION ERROR [None]
